FAERS Safety Report 4394915-0 (Version None)
Quarter: 2004Q3

REPORT INFORMATION
  Report Type: 
  Country: None (occurrence: None)
  Receive Date: 20040712
  Receipt Date: 20040701
  Transmission Date: 20050211
  Serious: Yes (Death)
  Sender: FDA-Public Use
  Company Number: GBPFL-S-20040017

PATIENT
  Age: 74 Year
  Sex: Male
  Weight: 96 kg

DRUGS (5)
  1. NAVELBINE [Suspect]
     Indication: NON-SMALL CELL LUNG CANCER
     Dosage: 1MG CYCLIC
     Route: 042
     Dates: start: 20040204, end: 20040211
  2. SENNA [Concomitant]
  3. CO-CODAMOL [Concomitant]
  4. ASPIRIN [Concomitant]
  5. LACTULOSE [Concomitant]

REACTIONS (1)
  - DEATH [None]
